FAERS Safety Report 4436696-8 (Version None)
Quarter: 2004Q3

REPORT INFORMATION
  Report Type: 
  Country: None (occurrence: None)
  Receive Date: 20040827
  Receipt Date: 20040827
  Transmission Date: 20050211
  Serious: Yes (Hospitalization)
  Sender: FDA-Public Use
  Company Number: None

PATIENT
  Sex: Male
  Weight: 71.2147 kg

DRUGS (3)
  1. SPIRONOLACTONE [Suspect]
     Indication: OEDEMA PERIPHERAL
     Dosage: 100 MG/DAY
     Dates: start: 20040203, end: 20040220
  2. ENALAPRIL [Suspect]
     Indication: DIABETES MELLITUS
     Dosage: 15 MG /DAY
     Dates: start: 20030711, end: 20040226
  3. ENALAPRIL [Suspect]
     Indication: HYPERTENSION
     Dosage: 15 MG /DAY
     Dates: start: 20030711, end: 20040226

REACTIONS (1)
  - HYPERKALAEMIA [None]
